FAERS Safety Report 19005068 (Version 3)
Quarter: 2024Q3

REPORT INFORMATION
  Report Type: Report from Study
  Country: US (occurrence: US)
  Receive Date: 20210312
  Receipt Date: 20240711
  Transmission Date: 20241017
  Serious: No
  Sender: NOVARTIS
  Company Number: NVSC2021US058347

PATIENT
  Sex: Male

DRUGS (1)
  1. COSENTYX [Suspect]
     Active Substance: SECUKINUMAB
     Indication: Product used for unknown indication
     Dosage: UNK UNK, UNKNOWN
     Route: 065

REACTIONS (2)
  - Illness [Unknown]
  - Malaise [Unknown]
